FAERS Safety Report 18560938 (Version 2)
Quarter: 2020Q4

REPORT INFORMATION
  Report Type: Report from Study
  Country: CA (occurrence: CA)
  Receive Date: 20201130
  Receipt Date: 20201230
  Transmission Date: 20210114
  Serious: Yes (Hospitalization)
  Sender: FDA-Public Use
  Company Number: CA-TAIHO ONCOLOGY  INC-EU-2020-04150

PATIENT
  Age: 37 Year
  Sex: Female

DRUGS (1)
  1. LONSURF [Suspect]
     Active Substance: TIPIRACIL HYDROCHLORIDE\TRIFLURIDINE
     Indication: COLORECTAL CANCER METASTATIC
     Dosage: DOSE, FREQUENCY AND CURRENT CYCLE UNKNOWN
     Route: 048

REACTIONS (3)
  - Febrile neutropenia [Unknown]
  - Ureteric obstruction [Unknown]
  - Disease progression [Unknown]
